FAERS Safety Report 14490053 (Version 1)
Quarter: 2018Q1

REPORT INFORMATION
  Report Type: Spontaneous
  Country: FR (occurrence: FR)
  Receive Date: 20180206
  Receipt Date: 20180206
  Transmission Date: 20180509
  Serious: Yes (Other)
  Sender: FDA-Public Use
  Company Number: FR-AXELLIA-001344

PATIENT
  Age: 85 Year
  Sex: Male
  Weight: 83 kg

DRUGS (13)
  1. TRIATEC [Concomitant]
     Active Substance: RAMIPRIL
     Dosage: STRENGTH 2.5 MG
     Route: 048
  2. HEMIGOXINE NATIVELLE [Concomitant]
     Active Substance: DIGOXIN
     Dosage: STRENGTH 0.125 MG
     Route: 048
  3. CLINDAMYCIN. [Suspect]
     Active Substance: CLINDAMYCIN
     Indication: PRODUCT USED FOR UNKNOWN INDICATION
     Route: 042
     Dates: start: 20171122, end: 20171130
  4. KALEORID LP [Concomitant]
     Active Substance: POTASSIUM CHLORIDE
     Dosage: STRENGTH 1000MG
     Route: 048
  5. GLUCOPHAGE [Concomitant]
     Active Substance: METFORMIN HYDROCHLORIDE
     Dosage: STRENGTH 500 MG
     Route: 048
  6. GALVUS [Concomitant]
     Active Substance: VILDAGLIPTIN
     Dosage: STRENGTH 50 MG
     Route: 048
  7. OXACILLIN [Suspect]
     Active Substance: OXACILLIN SODIUM
     Indication: PRODUCT USED FOR UNKNOWN INDICATION
     Route: 042
     Dates: start: 20171122, end: 20171130
  8. TARDYFERON [Concomitant]
     Active Substance: FERROUS SULFATE
     Dosage: STRENGTH 80 MG
     Route: 048
  9. NOVONORM [Concomitant]
     Active Substance: REPAGLINIDE
     Dosage: STRENGTH 0.5 MG
     Route: 048
  10. PREVISCAN (FLUINDIONE) [Concomitant]
     Active Substance: FLUINDIONE
     Dosage: STRENGTH 20 MG
     Route: 048
  11. LASILIX FAIBLE [Concomitant]
     Active Substance: FUROSEMIDE
     Dosage: STRENGTH 20 MG
     Route: 048
  12. DAPTOMYCIN. [Suspect]
     Active Substance: DAPTOMYCIN
     Indication: PRODUCT USED FOR UNKNOWN INDICATION
     Route: 042
     Dates: start: 20171120, end: 20171122
  13. ULTIBRO BREEZHALER [Concomitant]
     Active Substance: GLYCOPYRRONIUM\INDACATEROL
     Route: 055

REACTIONS (1)
  - Hepatitis cholestatic [Recovering/Resolving]

NARRATIVE: CASE EVENT DATE: 20171128
